FAERS Safety Report 10043165 (Version 3)
Quarter: 2014Q3

REPORT INFORMATION
  Report Type: Report from Study
  Country: CA (occurrence: CA)
  Receive Date: 20140328
  Receipt Date: 20140924
  Transmission Date: 20150326
  Serious: Yes (Hospitalization, Other)
  Sender: FDA-Public Use
  Company Number: CA-BRISTOL-MYERS SQUIBB COMPANY-20565958

PATIENT
  Age: 72 Year
  Sex: Female

DRUGS (14)
  1. HYDROMORPHONE [Concomitant]
     Active Substance: HYDROMORPHONE
  2. AMITRIPTYLINE [Concomitant]
     Active Substance: AMITRIPTYLINE
  3. PREDNISONE. [Concomitant]
     Active Substance: PREDNISONE
  4. METOPROLOL [Concomitant]
     Active Substance: METOPROLOL
  5. ATIVAN [Concomitant]
     Active Substance: LORAZEPAM
  6. DENOSUMAB [Concomitant]
     Active Substance: DENOSUMAB
  7. VITAMIN D [Concomitant]
     Active Substance: CHOLECALCIFEROL
  8. CYMBALTA [Concomitant]
     Active Substance: DULOXETINE HYDROCHLORIDE
  9. FOLIC ACID. [Concomitant]
     Active Substance: FOLIC ACID
  10. ORENCIA [Suspect]
     Active Substance: ABATACEPT
     Indication: RHEUMATOID ARTHRITIS
     Dosage: 4C89733,AUG-2016
     Route: 042
     Dates: start: 20080626
  11. METFORMIN [Concomitant]
     Active Substance: METFORMIN HYDROCHLORIDE
  12. RABEPRAZOLE [Concomitant]
     Active Substance: RABEPRAZOLE
  13. MULTIVITAMIN [Concomitant]
     Active Substance: VITAMINS
  14. CALTRATE [Concomitant]
     Active Substance: CALCIUM CARBONATE

REACTIONS (3)
  - Dyspnoea [Unknown]
  - Cardiac disorder [Unknown]
  - Lung infection [Unknown]

NARRATIVE: CASE EVENT DATE: 201403
